FAERS Safety Report 25471217 (Version 1)
Quarter: 2025Q2

REPORT INFORMATION
  Report Type: Spontaneous
  Country: AU (occurrence: AU)
  Receive Date: 20250624
  Receipt Date: 20250624
  Transmission Date: 20250717
  Serious: Yes (Other)
  Sender: DR REDDYS
  Company Number: AU-AUS-AUS/2025/06/008992

PATIENT
  Age: 47 Year
  Sex: Female

DRUGS (2)
  1. ZOLEDRONIC ACID [Suspect]
     Active Substance: ZOLEDRONIC ACID
     Indication: Product used for unknown indication
     Route: 065
  2. METHOXYFLURANE [Suspect]
     Active Substance: METHOXYFLURANE
     Indication: Product used for unknown indication
     Route: 065

REACTIONS (7)
  - Acetabulum fracture [Unknown]
  - Renal impairment [Unknown]
  - Bone pain [Unknown]
  - Drug ineffective [Unknown]
  - Fluorosis [Unknown]
  - Pain [Unknown]
  - Intentional product misuse [Unknown]
